FAERS Safety Report 7018711-0 (Version None)
Quarter: 2010Q3

REPORT INFORMATION
  Report Type: 
  Country: None (occurrence: None)
  Receive Date: 20100928
  Receipt Date: 20100910
  Transmission Date: 20110219
  Serious: Yes (Hospitalization)
  Sender: FDA-Public Use
  Company Number: AU-BAYER-200939657GPV

PATIENT
  Age: 37 Year
  Sex: Female
  Weight: 65 kg

DRUGS (11)
  1. ALEMTUZUMAB [Suspect]
     Indication: MULTIPLE SCLEROSIS
     Route: 042
     Dates: start: 20090720, end: 20090724
  2. METHYLPREDNISOLONE [Concomitant]
     Route: 048
     Dates: start: 20090821, end: 20090823
  3. METHYLPREDNISOLONE [Concomitant]
     Dates: start: 20090720, end: 20090722
  4. LOVAN [Concomitant]
     Dates: start: 20080201
  5. KEFLEX [Concomitant]
     Dates: start: 20061001
  6. VALIUM [Concomitant]
     Dates: start: 20030101
  7. PANADOL [Concomitant]
     Dates: start: 20090720
  8. VENTOLIN [Concomitant]
     Dates: start: 20090729
  9. NASONEX [Concomitant]
     Dates: start: 20090822
  10. METOCLOPRAMIDE [Concomitant]
     Indication: NAUSEA
  11. ONDANSETRON [Concomitant]
     Indication: NAUSEA

REACTIONS (1)
  - LABYRINTHITIS [None]
